FAERS Safety Report 13292237 (Version 2)
Quarter: 2017Q1

REPORT INFORMATION
  Report Type: Report from Study
  Country: US (occurrence: US)
  Receive Date: 20170303
  Receipt Date: 20170308
  Transmission Date: 20170428
  Serious: Yes (Hospitalization)
  Sender: FDA-Public Use
  Company Number: US-ASTRAZENECA-2015SF17913

PATIENT
  Age: 21561 Day
  Sex: Female
  Weight: 56.8 kg

DRUGS (93)
  1. ADVAIR DISKUS [Concomitant]
     Active Substance: FLUTICASONE PROPIONATE\SALMETEROL XINAFOATE
     Route: 055
     Dates: start: 2013, end: 20150927
  2. FLOVENT [Concomitant]
     Active Substance: FLUTICASONE PROPIONATE
     Route: 055
     Dates: start: 20151029, end: 20151108
  3. MONODOX [Concomitant]
     Active Substance: DOXYCYCLINE
     Route: 048
     Dates: start: 20151029
  4. ALPRAZOLAM. [Concomitant]
     Active Substance: ALPRAZOLAM
     Indication: PNEUMONIA
     Route: 048
     Dates: start: 20151026, end: 20151029
  5. DUONEB [Concomitant]
     Active Substance: ALBUTEROL SULFATE\IPRATROPIUM BROMIDE
     Indication: CHRONIC OBSTRUCTIVE PULMONARY DISEASE
     Route: 055
     Dates: start: 20151026, end: 20151026
  6. DUONEB [Concomitant]
     Active Substance: ALBUTEROL SULFATE\IPRATROPIUM BROMIDE
     Indication: PNEUMONIA
     Route: 055
     Dates: start: 20151026, end: 20151026
  7. LEVONOX [Concomitant]
     Active Substance: ENOXAPARIN
     Indication: PNEUMONIA
     Route: 058
     Dates: start: 20151119, end: 20151121
  8. HABITROL [Concomitant]
     Active Substance: NICOTINE
     Indication: CHRONIC OBSTRUCTIVE PULMONARY DISEASE
     Route: 062
     Dates: start: 20151026, end: 20151029
  9. HABITROL [Concomitant]
     Active Substance: NICOTINE
     Indication: PNEUMONIA
     Route: 062
     Dates: start: 20151026, end: 20151029
  10. BENZONATATE. [Concomitant]
     Active Substance: BENZONATATE
     Indication: CHRONIC OBSTRUCTIVE PULMONARY DISEASE
     Route: 048
     Dates: start: 20151119, end: 20151121
  11. KETOROLAC [Concomitant]
     Active Substance: KETOROLAC\KETOROLAC TROMETHAMINE
     Indication: PNEUMONIA
     Route: 030
     Dates: start: 20151119, end: 20151119
  12. ZOLPIDEM [Concomitant]
     Active Substance: ZOLPIDEM\ZOLPIDEM TARTRATE
     Indication: PNEUMONIA
     Route: 048
     Dates: start: 20151120, end: 20151120
  13. LORAZEPAM. [Concomitant]
     Active Substance: LORAZEPAM
     Indication: ANXIETY
     Dosage: 0.5MG AS REQUIRED
     Route: 048
     Dates: start: 20130429
  14. FLUCONAZOLE. [Concomitant]
     Active Substance: FLUCONAZOLE
     Indication: VULVOVAGINAL CANDIDIASIS
     Route: 048
     Dates: start: 20151221, end: 20151221
  15. FORADIL [Concomitant]
     Active Substance: FORMOTEROL FUMARATE
     Route: 055
     Dates: start: 20151029, end: 20151108
  16. VENTOLIN HFA [Concomitant]
     Active Substance: ALBUTEROL SULFATE
     Indication: CHRONIC OBSTRUCTIVE PULMONARY DISEASE
  17. PREDNISONE. [Concomitant]
     Active Substance: PREDNISONE
     Indication: CHRONIC OBSTRUCTIVE PULMONARY DISEASE
     Route: 048
     Dates: start: 20151217, end: 20151219
  18. PREDNISONE. [Concomitant]
     Active Substance: PREDNISONE
     Indication: CHRONIC OBSTRUCTIVE PULMONARY DISEASE
     Route: 048
     Dates: start: 20151223, end: 20151225
  19. TESSALON [Concomitant]
     Active Substance: BENZONATATE
     Route: 048
     Dates: start: 20151029
  20. ALPRAZOLAM. [Concomitant]
     Active Substance: ALPRAZOLAM
     Indication: CHRONIC OBSTRUCTIVE PULMONARY DISEASE
     Dosage: 0.5MG AS REQUIRED
     Route: 048
     Dates: start: 20151119, end: 20151120
  21. METHOCARBAMOL. [Concomitant]
     Active Substance: METHOCARBAMOL
     Indication: CHRONIC OBSTRUCTIVE PULMONARY DISEASE
     Route: 048
     Dates: start: 20151026, end: 20151029
  22. METHOCARBAMOL. [Concomitant]
     Active Substance: METHOCARBAMOL
     Indication: CHRONIC OBSTRUCTIVE PULMONARY DISEASE
     Dosage: 50.0MG AS REQUIRED
     Route: 048
     Dates: start: 20151119, end: 20151121
  23. PANTOPRAZOLE [Concomitant]
     Active Substance: PANTOPRAZOLE SODIUM
     Indication: PNEUMONIA
     Route: 048
     Dates: start: 20151119, end: 20151121
  24. LEVONOX [Concomitant]
     Active Substance: ENOXAPARIN
     Indication: PNEUMONIA
     Route: 058
     Dates: start: 20151026, end: 20151029
  25. NACL 0.9% [Concomitant]
     Active Substance: SODIUM CHLORIDE
     Indication: CHRONIC OBSTRUCTIVE PULMONARY DISEASE
     Route: 042
     Dates: start: 20151119, end: 20151121
  26. ONDANSETRON [Concomitant]
     Active Substance: ONDANSETRON
     Indication: PNEUMONIA
     Route: 042
     Dates: start: 20151119, end: 20151119
  27. OMNIPAQUE [Concomitant]
     Active Substance: IOHEXOL
     Indication: PNEUMONIA
     Route: 042
     Dates: start: 20151119, end: 20151119
  28. PERCOCET 5-325MG [Concomitant]
     Indication: PNEUMONIA
     Route: 048
     Dates: start: 20151119, end: 20151121
  29. FORMOTEROL FUMARATE DIHYDRATE [Concomitant]
     Active Substance: FORMOTEROL FUMARATE DIHYDRATE
     Indication: PNEUMONIA
     Dosage: 12 AND 181G MICROGRAM(S) DAILY
     Route: 055
     Dates: start: 20151120, end: 20151121
  30. GLYCOPYRRONIUM + FORMOTEROL [Suspect]
     Active Substance: GLYCOPYRRONIUM\FORMOTEROL FUMARATE
     Indication: CHRONIC OBSTRUCTIVE PULMONARY DISEASE
     Dosage: 14.4/9.6 ???G EX-ACTUATOR BID
     Route: 055
     Dates: start: 20151029, end: 20151115
  31. FLOVENT [Concomitant]
     Active Substance: FLUTICASONE PROPIONATE
     Route: 055
     Dates: start: 20150928, end: 20151011
  32. ROBAXIN [Concomitant]
     Active Substance: METHOCARBAMOL
     Route: 048
     Dates: start: 20150901
  33. DUONEB [Concomitant]
     Active Substance: ALBUTEROL SULFATE\IPRATROPIUM BROMIDE
     Indication: PNEUMONIA
     Route: 055
     Dates: start: 20151119, end: 20151119
  34. METHOCARBAMOL. [Concomitant]
     Active Substance: METHOCARBAMOL
     Indication: PNEUMONIA
     Dosage: 50.0MG AS REQUIRED
     Route: 048
     Dates: start: 20151119, end: 20151121
  35. LEVONOX [Concomitant]
     Active Substance: ENOXAPARIN
     Indication: CHRONIC OBSTRUCTIVE PULMONARY DISEASE
     Route: 058
     Dates: start: 20151026, end: 20151029
  36. NORCO 7.5-325MG [Concomitant]
     Indication: CHRONIC OBSTRUCTIVE PULMONARY DISEASE
     Dosage: 1.0DF AS REQUIRED
     Route: 048
     Dates: start: 20151119, end: 20151119
  37. MIRALAX [Concomitant]
     Active Substance: POLYETHYLENE GLYCOL 3350
     Indication: CHRONIC OBSTRUCTIVE PULMONARY DISEASE
     Route: 048
     Dates: start: 20151120, end: 20151121
  38. MIRALAX [Concomitant]
     Active Substance: POLYETHYLENE GLYCOL 3350
     Indication: PNEUMONIA
     Route: 048
     Dates: start: 20151120, end: 20151121
  39. PREDNISONE. [Concomitant]
     Active Substance: PREDNISONE
     Indication: PNEUMONIA
     Route: 048
     Dates: start: 20151026, end: 20151029
  40. PREDNISONE. [Concomitant]
     Active Substance: PREDNISONE
     Indication: PNEUMONIA
     Route: 048
     Dates: start: 20151117, end: 20151119
  41. PREDNISONE. [Concomitant]
     Active Substance: PREDNISONE
     Indication: PNEUMONIA
     Route: 048
     Dates: start: 20151220, end: 20151222
  42. ALPRAZOLAM. [Concomitant]
     Active Substance: ALPRAZOLAM
     Indication: CHRONIC OBSTRUCTIVE PULMONARY DISEASE
     Route: 048
     Dates: start: 20151026, end: 20151029
  43. SOLU-MEDROL [Concomitant]
     Active Substance: METHYLPREDNISOLONE SODIUM SUCCINATE
     Indication: CHRONIC OBSTRUCTIVE PULMONARY DISEASE
     Route: 042
     Dates: start: 20151026, end: 20151026
  44. PANTOPRAZOLE [Concomitant]
     Active Substance: PANTOPRAZOLE SODIUM
     Indication: PNEUMONIA
     Route: 048
     Dates: start: 20151026, end: 20151029
  45. LEVONOX [Concomitant]
     Active Substance: ENOXAPARIN
     Indication: CHRONIC OBSTRUCTIVE PULMONARY DISEASE
     Route: 058
     Dates: start: 20151119, end: 20151121
  46. DOXYCYCLINE MONOHYDRATE [Concomitant]
     Active Substance: DOXYCYCLINE
     Indication: CHRONIC OBSTRUCTIVE PULMONARY DISEASE
     Dosage: 100.0MG AS REQUIRED
     Route: 048
     Dates: start: 20151026, end: 20151029
  47. BENZONATATE. [Concomitant]
     Active Substance: BENZONATATE
     Indication: CHRONIC OBSTRUCTIVE PULMONARY DISEASE
     Route: 048
     Dates: start: 20151026, end: 20151029
  48. BENZONATATE. [Concomitant]
     Active Substance: BENZONATATE
     Indication: PNEUMONIA
     Route: 048
     Dates: start: 20151026, end: 20151029
  49. NACL 0.9% [Concomitant]
     Active Substance: SODIUM CHLORIDE
     Indication: PNEUMONIA
     Route: 042
     Dates: start: 20151027, end: 20151029
  50. TRAMADOL. [Concomitant]
     Active Substance: TRAMADOL
     Indication: PNEUMONIA
     Route: 048
     Dates: start: 20151121
  51. AUGMENTIN [Concomitant]
     Active Substance: AMOXICILLIN\CLAVULANATE POTASSIUM
     Indication: PNEUMONIA
     Route: 048
     Dates: start: 20151128, end: 20151203
  52. PREDNISONE. [Concomitant]
     Active Substance: PREDNISONE
     Indication: CHRONIC OBSTRUCTIVE PULMONARY DISEASE
     Route: 048
     Dates: start: 20151114, end: 20151116
  53. PREDNISONE. [Concomitant]
     Active Substance: PREDNISONE
     Indication: PNEUMONIA
     Route: 048
     Dates: start: 20151114, end: 20151116
  54. PREDNISONE. [Concomitant]
     Active Substance: PREDNISONE
     Indication: CHRONIC OBSTRUCTIVE PULMONARY DISEASE
     Route: 048
     Dates: start: 20151117, end: 20151119
  55. METHOCARBAMOL. [Concomitant]
     Active Substance: METHOCARBAMOL
     Indication: PNEUMONIA
     Route: 048
     Dates: start: 20151026, end: 20151029
  56. PANTOPRAZOLE [Concomitant]
     Active Substance: PANTOPRAZOLE SODIUM
     Indication: CHRONIC OBSTRUCTIVE PULMONARY DISEASE
     Route: 048
     Dates: start: 20151119, end: 20151121
  57. HABITROL [Concomitant]
     Active Substance: NICOTINE
     Indication: PNEUMONIA
     Route: 062
     Dates: start: 20151119, end: 20151121
  58. BENZONATATE. [Concomitant]
     Active Substance: BENZONATATE
     Indication: PNEUMONIA
     Route: 048
     Dates: start: 20151119, end: 20151121
  59. NORCO 7.5-325MG [Concomitant]
     Indication: PNEUMONIA
     Dosage: 1.0DF AS REQUIRED
     Route: 048
     Dates: start: 20151026, end: 20151028
  60. SYMBICORT [Concomitant]
     Active Substance: BUDESONIDE\FORMOTEROL FUMARATE DIHYDRATE
     Indication: CHRONIC OBSTRUCTIVE PULMONARY DISEASE
     Route: 055
     Dates: start: 20151027, end: 20151029
  61. GLYCOPYRRONIUM + FORMOTEROL [Suspect]
     Active Substance: GLYCOPYRRONIUM\FORMOTEROL FUMARATE
     Indication: CHRONIC OBSTRUCTIVE PULMONARY DISEASE
     Dosage: 14.4/9.6 ???G EX-ACTUATOR BID
     Route: 055
     Dates: start: 20151012, end: 20151026
  62. PREDNISONE. [Concomitant]
     Active Substance: PREDNISONE
     Indication: PNEUMONIA
     Route: 048
     Dates: start: 20151119, end: 20151121
  63. PREDNISONE. [Concomitant]
     Active Substance: PREDNISONE
     Indication: PNEUMONIA
     Route: 048
     Dates: start: 20151223, end: 20151225
  64. DUONEB [Concomitant]
     Active Substance: ALBUTEROL SULFATE\IPRATROPIUM BROMIDE
     Indication: CHRONIC OBSTRUCTIVE PULMONARY DISEASE
     Route: 055
     Dates: start: 20151119, end: 20151119
  65. ALBUTEROL. [Concomitant]
     Active Substance: ALBUTEROL
     Indication: CHRONIC OBSTRUCTIVE PULMONARY DISEASE
     Route: 055
     Dates: start: 20151026, end: 20151026
  66. PANTOPRAZOLE [Concomitant]
     Active Substance: PANTOPRAZOLE SODIUM
     Indication: CHRONIC OBSTRUCTIVE PULMONARY DISEASE
     Route: 048
     Dates: start: 20151026, end: 20151029
  67. TEMAZEPAM. [Concomitant]
     Active Substance: TEMAZEPAM
     Indication: CHRONIC OBSTRUCTIVE PULMONARY DISEASE
     Route: 048
     Dates: start: 20151026, end: 20151029
  68. CEPASTAT [Concomitant]
     Active Substance: PHENOL
     Indication: CHRONIC OBSTRUCTIVE PULMONARY DISEASE
     Dosage: 1.0DF AS REQUIRED
     Route: 048
     Dates: start: 20151027, end: 20151027
  69. LEVAQUIN [Concomitant]
     Active Substance: LEVOFLOXACIN
     Indication: PNEUMONIA
     Route: 042
     Dates: start: 20151119, end: 20151119
  70. ROCEPHIN [Concomitant]
     Active Substance: CEFTRIAXONE SODIUM
     Indication: PNEUMONIA
     Route: 042
     Dates: start: 20151119, end: 20151121
  71. AZITHROMYCIN ANHYDROUS. [Concomitant]
     Active Substance: AZITHROMYCIN ANHYDROUS
     Indication: PNEUMONIA
     Route: 042
     Dates: start: 20151119, end: 20151121
  72. HYDROCODONE-ACETAMINOPHEN 5-325MG [Concomitant]
     Indication: PNEUMONIA
     Dosage: 1.0DF AS REQUIRED
     Route: 048
     Dates: start: 20151128
  73. PREDNISONE. [Concomitant]
     Active Substance: PREDNISONE
     Indication: CHRONIC OBSTRUCTIVE PULMONARY DISEASE
     Route: 048
     Dates: start: 20151026, end: 20151029
  74. PREDNISONE. [Concomitant]
     Active Substance: PREDNISONE
     Indication: PNEUMONIA
     Route: 048
     Dates: start: 20151214, end: 20151216
  75. PREDNISONE. [Concomitant]
     Active Substance: PREDNISONE
     Indication: PNEUMONIA
     Route: 048
     Dates: start: 20151217, end: 20151219
  76. ALPRAZOLAM. [Concomitant]
     Active Substance: ALPRAZOLAM
     Indication: PNEUMONIA
     Dosage: 0.5MG AS REQUIRED
     Route: 048
     Dates: start: 20151119, end: 20151120
  77. ACETAMINOPHEN. [Concomitant]
     Active Substance: ACETAMINOPHEN
     Indication: CHRONIC OBSTRUCTIVE PULMONARY DISEASE
     Route: 048
     Dates: start: 20151026, end: 20151026
  78. HABITROL [Concomitant]
     Active Substance: NICOTINE
     Indication: CHRONIC OBSTRUCTIVE PULMONARY DISEASE
     Route: 062
     Dates: start: 20151119, end: 20151121
  79. NORCO 7.5-325MG [Concomitant]
     Indication: CHRONIC OBSTRUCTIVE PULMONARY DISEASE
     Dosage: 1.0DF AS REQUIRED
     Route: 048
     Dates: start: 20151026, end: 20151028
  80. NORCO 7.5-325MG [Concomitant]
     Indication: PNEUMONIA
     Dosage: 1.0DF AS REQUIRED
     Route: 048
     Dates: start: 20151119, end: 20151119
  81. NACL 0.9% [Concomitant]
     Active Substance: SODIUM CHLORIDE
     Indication: PNEUMONIA
     Route: 042
     Dates: start: 20151119, end: 20151121
  82. MIRALAX [Concomitant]
     Active Substance: POLYETHYLENE GLYCOL 3350
     Indication: CHRONIC OBSTRUCTIVE PULMONARY DISEASE
     Route: 048
     Dates: start: 20151028, end: 20151029
  83. FLUTICASONE. [Concomitant]
     Active Substance: FLUTICASONE
     Indication: PNEUMONIA
     Dosage: 220 AND 181G MICROGRAM(S) DAILY
     Route: 055
     Dates: start: 20151120, end: 20151121
  84. PREDNISONE. [Concomitant]
     Active Substance: PREDNISONE
     Indication: CHRONIC OBSTRUCTIVE PULMONARY DISEASE
     Route: 048
     Dates: start: 20151119, end: 20151121
  85. PREDNISONE. [Concomitant]
     Active Substance: PREDNISONE
     Indication: CHRONIC OBSTRUCTIVE PULMONARY DISEASE
     Route: 048
     Dates: start: 20151214, end: 20151216
  86. PREDNISONE. [Concomitant]
     Active Substance: PREDNISONE
     Indication: CHRONIC OBSTRUCTIVE PULMONARY DISEASE
     Route: 048
     Dates: start: 20151220, end: 20151222
  87. PROVENTIL [Concomitant]
     Active Substance: ALBUTEROL
     Dosage: 0.5ML AS REQUIRED
     Route: 055
  88. PRILOSEC OTC [Concomitant]
     Active Substance: OMEPRAZOLE MAGNESIUM
     Route: 048
     Dates: start: 20140901
  89. NACL 0.9% [Concomitant]
     Active Substance: SODIUM CHLORIDE
     Indication: CHRONIC OBSTRUCTIVE PULMONARY DISEASE
     Route: 042
     Dates: start: 20151027, end: 20151029
  90. MIRALAX [Concomitant]
     Active Substance: POLYETHYLENE GLYCOL 3350
     Indication: PNEUMONIA
     Route: 048
     Dates: start: 20151028, end: 20151029
  91. ATARAX [Concomitant]
     Active Substance: HYDROXYZINE HYDROCHLORIDE
     Indication: PNEUMONIA
     Route: 048
     Dates: start: 20151119, end: 20151119
  92. IBUPROFEN. [Concomitant]
     Active Substance: IBUPROFEN
     Indication: ROTATOR CUFF SYNDROME
     Dosage: 800.0MG AS REQUIRED
     Route: 048
     Dates: start: 20151016
  93. CIPROFLOXACIN. [Concomitant]
     Active Substance: CIPROFLOXACIN
     Indication: URINARY TRACT INFECTION
     Route: 048
     Dates: start: 20151223, end: 20151230

REACTIONS (1)
  - Pneumonia [Recovering/Resolving]

NARRATIVE: CASE EVENT DATE: 20151114
